FAERS Safety Report 21487243 (Version 4)
Quarter: 2022Q4

REPORT INFORMATION
  Report Type: Report from Study
  Country: BR (occurrence: BR)
  Receive Date: 20221020
  Receipt Date: 20221214
  Transmission Date: 20230113
  Serious: Yes (Hospitalization)
  Sender: FDA-Public Use
  Company Number: BR-JNJFOC-20221028601

PATIENT
  Age: 83 Year
  Sex: Male
  Weight: 71 kg

DRUGS (14)
  1. AMIVANTAMAB [Suspect]
     Active Substance: AMIVANTAMAB
     Indication: Non-small cell lung cancer
     Dosage: MOST RECENT DOSE 11-OCT-2022
     Route: 042
     Dates: start: 20220830
  2. CARBOPLATIN [Suspect]
     Active Substance: CARBOPLATIN
     Indication: Non-small cell lung cancer
     Route: 042
     Dates: start: 20220830, end: 20221011
  3. PEMETREXED [Suspect]
     Active Substance: PEMETREXED
     Indication: Non-small cell lung cancer
     Route: 042
     Dates: start: 20220830, end: 20221011
  4. CLONAZEPAM [Concomitant]
     Active Substance: CLONAZEPAM
     Indication: Anxiety
     Route: 048
     Dates: start: 20030101
  5. DEXAMETHASONE [Concomitant]
     Active Substance: DEXAMETHASONE
     Indication: Rash
     Route: 048
     Dates: start: 20220911
  6. TRIAMCINOLONE ACETONIDE [Concomitant]
     Active Substance: TRIAMCINOLONE ACETONIDE
     Indication: Rash
     Route: 061
     Dates: start: 20220912
  7. SELENIUM SULFIDE [Concomitant]
     Active Substance: SELENIUM SULFIDE
     Indication: Rash
     Route: 061
     Dates: start: 20220912
  8. DOXYCYCLINE [Concomitant]
     Active Substance: DOXYCYCLINE
     Indication: Rash
     Route: 048
     Dates: start: 20220915
  9. SACCHAROMYCES CEREVISIAE [Concomitant]
     Active Substance: SACCHAROMYCES CEREVISIAE
     Indication: Diarrhoea
     Route: 048
  10. APIXABAN [Concomitant]
     Active Substance: APIXABAN
     Indication: Thrombosis prophylaxis
     Route: 048
     Dates: start: 20200301
  11. DIOSMIN [Concomitant]
     Active Substance: DIOSMIN
     Indication: Oedema peripheral
     Route: 048
     Dates: start: 20220929
  12. DIOSMIN [Concomitant]
     Active Substance: DIOSMIN
     Route: 061
     Dates: start: 20220929
  13. HESPERIDIN [Concomitant]
     Active Substance: HESPERIDIN
     Indication: Oedema peripheral
     Route: 048
     Dates: start: 20220929
  14. HESPERIDIN [Concomitant]
     Active Substance: HESPERIDIN
     Route: 061
     Dates: start: 20220929

REACTIONS (2)
  - Localised oedema [Recovered/Resolved]
  - Oedema peripheral [Recovered/Resolved]

NARRATIVE: CASE EVENT DATE: 20221013
